FAERS Safety Report 9301908 (Version 1)
Quarter: 2013Q2

REPORT INFORMATION
  Report Type: Report from Study
  Country: US (occurrence: US)
  Receive Date: 20130521
  Receipt Date: 20130521
  Transmission Date: 20140414
  Serious: Yes (Hospitalization)
  Sender: FDA-Public Use
  Company Number: US-SHIRE-SPV1-2008-00951

PATIENT
  Age: 13 Year
  Sex: Male
  Weight: 35.4 kg

DRUGS (6)
  1. IDURSULFASE [Suspect]
     Indication: MUCOPOLYSACCHARIDOSIS II
     Dosage: 0.62 MG/KG, 1X/WEEK
     Route: 041
     Dates: start: 20080415
  2. IDURSULFASE [Suspect]
     Dosage: 0.51 MG/KG, 1X/WEEK
     Route: 041
     Dates: start: 20061016
  3. IDURSULFASE [Suspect]
     Dosage: 24 MG, 1X/WEEK
     Route: 041
     Dates: start: 20061211
  4. PREDNISONE [Concomitant]
     Indication: PREMEDICATION
     Dosage: 40 MG, 1X/WEEK
     Route: 065
     Dates: start: 200611
  5. CETIRIZINE [Concomitant]
     Indication: PREMEDICATION
     Dosage: 10 MG, 1X/DAY:QD
  6. ADRENERGICS AND OTH.DRUGS FOR OBST.AIRW.DIS. [Concomitant]
     Indication: RESPIRATORY DISORDER
     Dosage: 5 MG, 1X/DAY:QD

REACTIONS (1)
  - Respiratory tract infection [Recovered/Resolved]
